FAERS Safety Report 10012975 (Version 2)
Quarter: 2014Q2

REPORT INFORMATION
  Report Type: Spontaneous
  Country: US (occurrence: US)
  Receive Date: 20140314
  Receipt Date: 20140422
  Transmission Date: 20141212
  Serious: Yes (Other)
  Sender: FDA-Public Use
  Company Number: US-PFIZER INC-2014071422

PATIENT
  Sex: Male

DRUGS (1)
  1. ADVIL GELCAPS [Suspect]
     Dosage: UNK, ONCE
     Dates: start: 20140221, end: 20140221

REACTIONS (3)
  - Hypersensitivity [Recovered/Resolved]
  - Lip swelling [Recovered/Resolved]
  - Pharyngeal oedema [Recovered/Resolved]
